FAERS Safety Report 9945533 (Version 1)
Quarter: 2014Q1

REPORT INFORMATION
  Report Type: Spontaneous
  Country: US (occurrence: US)
  Receive Date: 20140303
  Receipt Date: 20140303
  Transmission Date: 20141002
  Serious: No
  Sender: FDA-Public Use
  Company Number: US-AMGEN-USASP2013067142

PATIENT
  Age: 55 Year
  Sex: Male
  Weight: 88.44 kg

DRUGS (4)
  1. ENBREL [Suspect]
     Indication: PSORIASIS
     Dosage: 50 MG, QWK
     Route: 058
  2. ELIDEL [Concomitant]
     Dosage: 1 %, UNK
  3. ZOLPIDEM [Concomitant]
     Dosage: 5 MG, UNK
  4. DIOVAN [Concomitant]
     Dosage: 40 MG, UNK

REACTIONS (2)
  - Skin disorder [Unknown]
  - Skin burning sensation [Unknown]
